FAERS Safety Report 5161216-2 (Version None)
Quarter: 2006Q4

REPORT INFORMATION
  Report Type: 
  Country: None (occurrence: None)
  Receive Date: 20061130
  Receipt Date: 20060822
  Transmission Date: 20070319
  Serious: No
  Sender: FDA-Public Use
  Company Number: US-BRISTOL-MYERS SQUIBB COMPANY-13485057

PATIENT
  Age: 54 Year
  Sex: Female

DRUGS (2)
  1. ERBITUX [Suspect]
     Route: 042
     Dates: start: 20060711, end: 20060718
  2. CAMPTOSAR [Concomitant]

REACTIONS (2)
  - ABDOMINAL PAIN [None]
  - RASH [None]
